FAERS Safety Report 7060254-2 (Version None)
Quarter: 2010Q4

REPORT INFORMATION
  Report Type: 
  Country: None (occurrence: None)
  Receive Date: 20101025
  Receipt Date: 20101019
  Transmission Date: 20110411
  Serious: Yes (Life-Threatening, Hospitalization)
  Sender: FDA-Public Use
  Company Number: US-B.I. PHARMACEUTICALS,INC./RIDGEFIELD-2010-BP-09465BP

PATIENT
  Sex: Male
  Weight: 99.8 kg

DRUGS (18)
  1. DABIGATRAN [Suspect]
     Indication: CEREBROVASCULAR ACCIDENT PROPHYLAXIS
     Route: 048
     Dates: start: 20070219, end: 20100804
  2. DABIGATRAN [Suspect]
     Indication: ATRIAL FIBRILLATION
  3. HYZAAR [Concomitant]
     Indication: HYPERTENSION
     Route: 048
  4. HYZAAR [Concomitant]
     Route: 048
  5. COREG CR [Concomitant]
     Indication: CARDIAC FAILURE CONGESTIVE
     Dosage: 20 MG
     Route: 048
  6. COREG CR [Concomitant]
     Indication: ATRIAL FIBRILLATION
  7. HYDROCHLOROTHIAZIDE [Concomitant]
     Indication: HYPERTENSION
     Dosage: 12.5 MG
     Route: 048
  8. VITAMIN B COMPLEX CAP [Concomitant]
     Indication: ERECTILE DYSFUNCTION
     Dosage: 1 ANZ
     Route: 048
  9. TESTIM [Concomitant]
     Indication: ERECTILE DYSFUNCTION
     Route: 061
  10. TRIAMCINOLONE [Concomitant]
     Indication: RASH
     Route: 061
  11. XANAX [Concomitant]
     Indication: ANXIETY
     Dosage: 1 PRN
     Route: 048
     Dates: start: 20100501
  12. DULCOLAX [Concomitant]
     Indication: CONSTIPATION
     Dosage: 10 MG
     Route: 048
     Dates: start: 20100501, end: 20100823
  13. AMBIEN [Concomitant]
     Indication: INSOMNIA
     Dosage: 5 MG
     Route: 048
     Dates: start: 20100801
  14. MORPHINE [Concomitant]
     Indication: PAIN
     Dosage: LIQUID, Q4H
     Route: 048
     Dates: start: 20100801
  15. ZOFRAN [Concomitant]
     Indication: NAUSEA
     Dosage: Q4H, PRN
     Route: 048
     Dates: start: 20100801
  16. OXYCONTIN [Concomitant]
     Indication: PAIN
     Dosage: Q12H,
     Route: 048
     Dates: start: 20100801
  17. PROTONIX [Concomitant]
     Indication: ABDOMINAL DISCOMFORT
     Dosage: 40 MG
     Route: 048
     Dates: start: 20100801
  18. PROTONIX [Concomitant]
     Indication: GASTROOESOPHAGEAL REFLUX DISEASE

REACTIONS (4)
  - HAEMOCHROMATOSIS [None]
  - HEPATIC CIRRHOSIS [None]
  - HEPATIC NEOPLASM MALIGNANT [None]
  - MENTAL STATUS CHANGES [None]
